FAERS Safety Report 10228857 (Version 4)
Quarter: 2014Q3

REPORT INFORMATION
  Report Type: Spontaneous
  Country: US (occurrence: US)
  Receive Date: 20140610
  Receipt Date: 20140724
  Transmission Date: 20150326
  Serious: Yes (Other)
  Sender: FDA-Public Use
  Company Number: US-009507513-1405USA015701

PATIENT
  Age: 18 Year
  Sex: Female
  Weight: 123.36 kg

DRUGS (1)
  1. IMPLANON [Suspect]
     Active Substance: ETONOGESTREL
     Indication: CONTRACEPTION
     Dosage: 1 ROD, IN THE RIGHT UPPER ARM
     Route: 059
     Dates: start: 20110509

REACTIONS (3)
  - Weight increased [Unknown]
  - Medical device complication [Unknown]
  - Incorrect drug administration duration [Unknown]

NARRATIVE: CASE EVENT DATE: 20140510
